FAERS Safety Report 6047047-X (Version None)
Quarter: 2009Q1

REPORT INFORMATION
  Report Type: 
  Country: None (occurrence: None)
  Receive Date: 20090122
  Receipt Date: 20090112
  Transmission Date: 20090719
  Serious: Yes (Hospitalization, Disabling)
  Sender: FDA-Public Use
  Company Number: US-JNJFOC-20081004577

PATIENT
  Sex: Male
  Weight: 58.97 kg

DRUGS (10)
  1. REMICADE [Suspect]
     Route: 042
  2. REMICADE [Suspect]
     Route: 042
  3. REMICADE [Suspect]
     Indication: CROHN'S DISEASE
     Route: 042
  4. CYCLOSPORINE [Suspect]
     Indication: PSORIASIS
  5. ZOLOFT [Concomitant]
  6. LIALDA [Concomitant]
  7. IRON [Concomitant]
  8. VITAMIN [Concomitant]
  9. DICYCLOMINE [Concomitant]
  10. NEXIUM [Concomitant]

REACTIONS (5)
  - ABDOMINAL PAIN [None]
  - ARTHRALGIA [None]
  - CLOSTRIDIUM DIFFICILE COLITIS [None]
  - DYSPNOEA [None]
  - PUSTULAR PSORIASIS [None]
